FAERS Safety Report 4362344-1 (Version None)
Quarter: 2004Q2

REPORT INFORMATION
  Report Type: 
  Country: None (occurrence: None)
  Receive Date: 20040521
  Receipt Date: 20040511
  Transmission Date: 20050107
  Serious: Yes (Hospitalization)
  Sender: FDA-Public Use
  Company Number: ES-BRISTOL-MYERS SQUIBB COMPANY-12584355

PATIENT
  Age: 75 Year
  Sex: Male
  Weight: 55 kg

DRUGS (9)
  1. TAXOL [Suspect]
     Indication: NON-SMALL CELL LUNG CANCER
     Route: 042
     Dates: start: 20040406, end: 20040406
  2. FORTECORTIN [Concomitant]
  3. IBUPROFEN [Concomitant]
  4. OMEPRAZOLE [Concomitant]
  5. SEVREDOL [Concomitant]
  6. EMPORTAL [Concomitant]
  7. MORPHINE [Concomitant]
  8. PUNTUALEX [Concomitant]
  9. HODERNAL [Concomitant]

REACTIONS (3)
  - CONSTIPATION [None]
  - GENERAL PHYSICAL HEALTH DETERIORATION [None]
  - VOMITING [None]
